FAERS Safety Report 16002169 (Version 1)
Quarter: 2019Q1

REPORT INFORMATION
  Report Type: Spontaneous
  Country: US (occurrence: US)
  Receive Date: 20190225
  Receipt Date: 20190225
  Transmission Date: 20190418
  Serious: No
  Sender: FDA-Public Use
  Company Number: US-IGSA-SR10005730

PATIENT
  Age: 70 Year
  Sex: Female
  Weight: 58 kg

DRUGS (27)
  1. PROLASTIN-C [Suspect]
     Active Substance: .ALPHA.1-PROTEINASE INHIBITOR HUMAN
     Dosage: 60 MG/KG, Q.WK.
     Route: 042
     Dates: start: 20160505, end: 20180206
  2. CYCLOBENZAPRINE. [Concomitant]
     Active Substance: CYCLOBENZAPRINE
  3. ASPIRIN                            /00002701/ [Concomitant]
     Active Substance: ASPIRIN
  4. ALPRAZOLAM. [Concomitant]
     Active Substance: ALPRAZOLAM
  5. FENTANYL. [Concomitant]
     Active Substance: FENTANYL
  6. METOPROLOL. [Concomitant]
     Active Substance: METOPROLOL
  7. PROLASTIN-C [Suspect]
     Active Substance: .ALPHA.1-PROTEINASE INHIBITOR HUMAN
     Indication: ALPHA-1 ANTI-TRYPSIN DEFICIENCY
     Dosage: 3480 MG, Q.WK.
     Route: 042
     Dates: start: 20171226, end: 20180206
  8. PHENERGAN [Concomitant]
     Active Substance: PROMETHAZINE HYDROCHLORIDE
  9. ATORVASTATIN [Concomitant]
     Active Substance: ATORVASTATIN
  10. BENADRYL [Concomitant]
     Active Substance: DIPHENHYDRAMINE HYDROCHLORIDE
     Indication: PREMEDICATION
     Dosage: UNK
     Dates: start: 20180122, end: 20180122
  11. SYNTHROID [Concomitant]
     Active Substance: LEVOTHYROXINE SODIUM
  12. CEFDINIR. [Concomitant]
     Active Substance: CEFDINIR
  13. VENTOLIN [Concomitant]
     Active Substance: ALBUTEROL SULFATE
  14. WARFARIN [Concomitant]
     Active Substance: WARFARIN
  15. ENALAPRIL [Concomitant]
     Active Substance: ENALAPRIL
  16. POTASSIUM [Concomitant]
     Active Substance: POTASSIUM
  17. PROLASTIN-C [Suspect]
     Active Substance: .ALPHA.1-PROTEINASE INHIBITOR HUMAN
     Dosage: 3480 MG, Q.WK.
     Route: 042
     Dates: start: 20180130, end: 20180206
  18. PROLASTIN-C [Suspect]
     Active Substance: .ALPHA.1-PROTEINASE INHIBITOR HUMAN
     Dosage: 3480 MG, Q.WK.
     Route: 042
     Dates: start: 20180206, end: 20180206
  19. PERFOROMIST [Concomitant]
     Active Substance: FORMOTEROL FUMARATE DIHYDRATE
  20. PERCOCET                           /00446701/ [Concomitant]
     Active Substance: ACETAMINOPHEN\OXYCODONE HYDROCHLORIDE\OXYCODONE TEREPHTHALATE
  21. OXYGEN. [Concomitant]
     Active Substance: OXYGEN
     Dosage: 3 L, UNK
  22. PROLASTIN-C [Suspect]
     Active Substance: .ALPHA.1-PROTEINASE INHIBITOR HUMAN
     Dosage: 3480 MG, Q.WK.
     Route: 042
     Dates: start: 20180102, end: 20180206
  23. PROLASTIN-C [Suspect]
     Active Substance: .ALPHA.1-PROTEINASE INHIBITOR HUMAN
     Dosage: 3480 MG, Q.WK.
     Route: 042
     Dates: start: 20180122, end: 20180206
  24. MULTIVITAMIN                       /00097801/ [Concomitant]
     Active Substance: VITAMINS
  25. RANITIDINE. [Concomitant]
     Active Substance: RANITIDINE
  26. PROLASTIN-C [Suspect]
     Active Substance: .ALPHA.1-PROTEINASE INHIBITOR HUMAN
     Dosage: 3480 MG, Q.WK.
     Route: 042
     Dates: start: 20180108, end: 20180206
  27. NITROSTAT [Concomitant]
     Active Substance: NITROGLYCERIN

REACTIONS (4)
  - Urticaria [Not Recovered/Not Resolved]
  - Mental status changes [Not Recovered/Not Resolved]
  - Dyspnoea [Not Recovered/Not Resolved]
  - Pruritus [Not Recovered/Not Resolved]

NARRATIVE: CASE EVENT DATE: 20171226
